FAERS Safety Report 9904792 (Version 1)
Quarter: 2014Q1

REPORT INFORMATION
  Report Type: Spontaneous
  Country: US (occurrence: US)
  Receive Date: 20140218
  Receipt Date: 20140218
  Transmission Date: 20141002
  Serious: Yes (Life-Threatening, Hospitalization, Other)
  Sender: FDA-Public Use
  Company Number: US-B.I. PHARMACEUTICALS,INC./RIDGEFIELD-2014-BI-07013BP

PATIENT
  Sex: Male
  Weight: 109 kg

DRUGS (4)
  1. COMBIVENT [Suspect]
     Indication: CHRONIC OBSTRUCTIVE PULMONARY DISEASE
     Dosage: STRENGTH: 18 MCG / 103 MCG.
     Route: 055
     Dates: start: 2005, end: 201310
  2. SPIRIVA [Suspect]
     Indication: CHRONIC OBSTRUCTIVE PULMONARY DISEASE
     Dosage: 18 MCG
     Route: 055
  3. SYMBICORT [Concomitant]
     Indication: CHRONIC OBSTRUCTIVE PULMONARY DISEASE
     Dosage: 2 PUF
     Route: 055
  4. NEBULIZER [Concomitant]
     Indication: CHRONIC OBSTRUCTIVE PULMONARY DISEASE
     Dosage: STRENGTH: 1 VIAL; DAILY DOSE: 2 VIALS.
     Route: 055

REACTIONS (7)
  - Asbestosis [Not Recovered/Not Resolved]
  - Coronary artery occlusion [Recovered/Resolved]
  - Gait disturbance [Recovered/Resolved]
  - Poor peripheral circulation [Recovered/Resolved]
  - Arterial occlusive disease [Recovered/Resolved]
  - Hypoaesthesia [Recovered/Resolved]
  - Drug ineffective [Recovered/Resolved]
